FAERS Safety Report 13859538 (Version 1)
Quarter: 2017Q3

REPORT INFORMATION
  Report Type: Spontaneous
  Country: US (occurrence: US)
  Receive Date: 20170811
  Receipt Date: 20170811
  Transmission Date: 20171127
  Serious: Yes (Other)
  Sender: FDA-Public Use
  Company Number: None

PATIENT
  Age: 58 Year
  Sex: Female
  Weight: 61.2 kg

DRUGS (4)
  1. HYSINGLA ER [Suspect]
     Active Substance: HYDROCODONE BITARTRATE
     Indication: ARTHRITIS
     Route: 048
     Dates: start: 20170316, end: 20170802
  2. HYSINGLA ER [Suspect]
     Active Substance: HYDROCODONE BITARTRATE
     Indication: SPINAL FRACTURE
     Route: 048
     Dates: start: 20170316, end: 20170802
  3. HYSINGLA ER [Suspect]
     Active Substance: HYDROCODONE BITARTRATE
     Indication: PAIN
     Route: 048
     Dates: start: 20170316, end: 20170802
  4. HYDROCODOEN [Concomitant]

REACTIONS (3)
  - Wrong technique in product usage process [None]
  - Overdose [None]
  - Unresponsive to stimuli [None]

NARRATIVE: CASE EVENT DATE: 20170801
